FAERS Safety Report 7722603-9 (Version None)
Quarter: 2011Q3

REPORT INFORMATION
  Report Type: 
  Country: None (occurrence: None)
  Receive Date: 20110831
  Receipt Date: 20110817
  Transmission Date: 20111222
  Serious: Yes (Hospitalization)
  Sender: FDA-Public Use
  Company Number: GB-BAUSCH-2011BL005462

PATIENT
  Age: 8 Month
  Sex: Male

DRUGS (4)
  1. TIMOLOL MALEATE [Suspect]
     Indication: ACCIDENTAL EXPOSURE
     Route: 045
  2. PROPRANOLOL HCL [Suspect]
     Indication: SUPRAVENTRICULAR TACHYCARDIA
  3. SODIUM CHLORIDE [Suspect]
     Indication: NASAL CONGESTION
  4. SODIUM CHLORIDE [Concomitant]
     Route: 045

REACTIONS (13)
  - BRADYPNOEA [None]
  - DRUG INTERACTION [None]
  - HYPOTONIA [None]
  - HYPOTENSION [None]
  - METABOLIC ACIDOSIS [None]
  - INCORRECT ROUTE OF DRUG ADMINISTRATION [None]
  - MIOSIS [None]
  - BRADYCARDIA [None]
  - ACCIDENTAL EXPOSURE [None]
  - LETHARGY [None]
  - OVERDOSE [None]
  - PERIPHERAL COLDNESS [None]
  - DEPRESSED LEVEL OF CONSCIOUSNESS [None]
